FAERS Safety Report 12563953 (Version 2)
Quarter: 2016Q3

REPORT INFORMATION
  Report Type: Spontaneous
  Country: US (occurrence: US)
  Receive Date: 20160717
  Receipt Date: 20160718
  Transmission Date: 20161109
  Serious: Yes (Other)
  Sender: FDA-Public Use
  Company Number: US-TEVA-676762USA

PATIENT
  Sex: Female

DRUGS (1)
  1. COPAXONE [Suspect]
     Active Substance: GLATIRAMER ACETATE
     Indication: MULTIPLE SCLEROSIS
     Dosage: UNKNOWN FORM STRENGTH

REACTIONS (17)
  - Ear swelling [Unknown]
  - Stomatitis [Not Recovered/Not Resolved]
  - Allergy to synthetic fabric [Not Recovered/Not Resolved]
  - Seasonal allergy [Not Recovered/Not Resolved]
  - Allergy to chemicals [Not Recovered/Not Resolved]
  - Allergy to metals [Not Recovered/Not Resolved]
  - Dermatitis contact [Not Recovered/Not Resolved]
  - Erythema [Unknown]
  - Photosensitivity reaction [Not Recovered/Not Resolved]
  - Blister [Unknown]
  - Histamine abnormal [Unknown]
  - Food allergy [Not Recovered/Not Resolved]
  - Autoimmune disorder [Not Recovered/Not Resolved]
  - Hypersensitivity [Unknown]
  - Drug hypersensitivity [Not Recovered/Not Resolved]
  - Sunburn [Unknown]
  - Rubber sensitivity [Not Recovered/Not Resolved]

NARRATIVE: CASE EVENT DATE: 2016
